FAERS Safety Report 8839129 (Version 1)
Quarter: 2012Q4

REPORT INFORMATION
  Report Type: 
  Country: US (occurrence: US)
  Receive Date: 20121015
  Receipt Date: 20121015
  Transmission Date: 20130627
  Serious: No
  Sender: FDA-Public Use
  Company Number: US-BIOGENIDEC-198923

PATIENT
  Age: 50 None
  Sex: Female
  Weight: 71 kg

DRUGS (1)
  1. AVONEX [Suspect]
     Indication: MULTIPLE SCLEROSIS
     Route: 030
     Dates: start: 20040415, end: 20090105

REACTIONS (8)
  - Weight increased [Not Recovered/Not Resolved]
  - Hypertension [Recovered/Resolved]
  - Abdominal pain [Recovered/Resolved]
  - Abnormal sensation in eye [Recovered/Resolved]
  - Cognitive disorder [Not Recovered/Not Resolved]
  - Muscle spasms [Not Recovered/Not Resolved]
  - Influenza like illness [Recovered/Resolved]
  - Chest discomfort [Recovered/Resolved]
